FAERS Safety Report 5749315-5 (Version None)
Quarter: 2008Q2

REPORT INFORMATION
  Report Type: 
  Country: None (occurrence: None)
  Receive Date: 20080527
  Receipt Date: 20080520
  Transmission Date: 20081010
  Serious: Yes (Life-Threatening, Hospitalization, Disabling)
  Sender: FDA-Public Use
  Company Number: HR-AVENTIS-200814766GDDC

PATIENT
  Age: 72 Year
  Sex: Male

DRUGS (9)
  1. INSULIN GLARGINE [Suspect]
     Indication: DIABETES MELLITUS
     Route: 058
     Dates: start: 20031202
  2. OPTIPEN (INSULIN PUMP) [Suspect]
     Indication: DIABETES MELLITUS
  3. CODE UNBROKEN [Suspect]
     Route: 048
     Dates: start: 20040126
  4. GLYBURIDE [Concomitant]
     Dates: start: 20010801, end: 20080201
  5. ACETYLSALICYLIC ACID SRT [Concomitant]
     Indication: ACUTE MYOCARDIAL INFARCTION
     Dates: start: 19950801, end: 20080201
  6. RAMIPRIL + HYDROCHLOROTHIAZIDE [Concomitant]
     Dosage: DOSE: 2.5 + 12.5
     Dates: start: 20070201, end: 20080201
  7. ISOSORBIDE DINITRATE [Concomitant]
     Dates: start: 19951201, end: 20080201
  8. ATORVASTATIN CALCIUM [Concomitant]
     Dates: start: 20061201, end: 20080201
  9. PANTOPRAZOL [Concomitant]
     Dates: start: 20070801

REACTIONS (3)
  - MULTIPLE MYELOMA [None]
  - PLASMACYTOMA [None]
  - RENAL FAILURE ACUTE [None]
